FAERS Safety Report 8113751-2 (Version None)
Quarter: 2012Q1

REPORT INFORMATION
  Report Type: 
  Country: None (occurrence: None)
  Receive Date: 20120203
  Receipt Date: 20120126
  Transmission Date: 20120608
  Serious: Yes (Other)
  Sender: FDA-Public Use
  Company Number: CA-JNJFOC-20120201529

PATIENT
  Sex: Female

DRUGS (1)
  1. SIMPONI [Suspect]
     Indication: RHEUMATOID ARTHRITIS
     Route: 058
     Dates: start: 20100401

REACTIONS (5)
  - SALIVARY GLAND CALCULUS [None]
  - SJOGREN'S SYNDROME [None]
  - DRY MOUTH [None]
  - DRY EYE [None]
  - ABSCESS OF SALIVARY GLAND [None]
